FAERS Safety Report 17701968 (Version 2)
Quarter: 2020Q2

REPORT INFORMATION
  Report Type: Report from Study
  Country: US (occurrence: US)
  Receive Date: 20200424
  Receipt Date: 20200616
  Transmission Date: 20200714
  Serious: Yes (Other)
  Sender: FDA-Public Use
  Company Number: US-AMGEN-USASL2020062084

PATIENT
  Age: 44 Year
  Sex: Female

DRUGS (1)
  1. ENBREL [Suspect]
     Active Substance: ETANERCEPT
     Indication: RHEUMATOID ARTHRITIS
     Dosage: 50 MILLIGRAM, QWK
     Route: 065
     Dates: start: 20200401

REACTIONS (12)
  - Eye inflammation [Unknown]
  - Pruritus [Unknown]
  - Injection site pruritus [Unknown]
  - Injection site swelling [Unknown]
  - Eye pain [Unknown]
  - Injection site pain [Unknown]
  - Injection site rash [Unknown]
  - Pyrexia [Unknown]
  - Blindness [Recovering/Resolving]
  - Headache [Unknown]
  - Rash [Unknown]
  - Injection site erythema [Unknown]

NARRATIVE: CASE EVENT DATE: 202004
